FAERS Safety Report 7886085-9 (Version None)
Quarter: 2011Q4

REPORT INFORMATION
  Report Type: 
  Country: None (occurrence: None)
  Receive Date: 20111102
  Receipt Date: 20110623
  Transmission Date: 20120403
  Serious: No
  Sender: FDA-Public Use
  Company Number: US-AMGEN-USASP2011032370

PATIENT
  Sex: Male

DRUGS (8)
  1. TRAVATAN [Concomitant]
     Dosage: 0.004 %, UNK
  2. VITAMIN D [Concomitant]
     Dosage: 50000 IU, UNK
  3. SPIRONOLACTONE [Concomitant]
     Dosage: 50 MG, UNK
  4. CENTRUM SILVER                     /01292501/ [Concomitant]
  5. WELCHOL [Concomitant]
     Dosage: 625 MG, UNK
  6. ENBREL [Suspect]
     Indication: PRODUCT USED FOR UNKNOWN INDICATION
     Dosage: 50 MG, QWK
     Route: 058
  7. CHANTIX [Concomitant]
     Dosage: 1 MG, UNK
  8. LISINOPRIL [Concomitant]
     Dosage: 30 MG, UNK

REACTIONS (1)
  - THERAPEUTIC RESPONSE DECREASED [None]
